FAERS Safety Report 8450398-2 (Version None)
Quarter: 2012Q2

REPORT INFORMATION
  Report Type: 
  Country: None (occurrence: None)
  Receive Date: 20120620
  Receipt Date: 20120612
  Transmission Date: 20120825
  Serious: Yes (Hospitalization)
  Sender: FDA-Public Use
  Company Number: DE-UCBSA-027383

PATIENT
  Age: 69 Year
  Sex: Female
  Weight: 70 kg

DRUGS (12)
  1. CIMZIA [Suspect]
     Indication: RHEUMATOID ARTHRITIS
     Dosage: 9 DOSES
     Route: 058
     Dates: start: 20100526
  2. RAMIPRIL [Concomitant]
     Indication: HYPERTENSION
     Route: 048
     Dates: start: 20100101, end: 20101214
  3. MIRTAZAPINE [Concomitant]
     Indication: SLEEP DISORDER
     Route: 048
     Dates: start: 20090708
  4. FORAIR [Concomitant]
     Indication: DYSPNOEA
     Dates: start: 20071218
  5. HYDROCHLOROTHIAZIDE [Concomitant]
     Indication: HYPERTENSION
     Route: 048
     Dates: start: 20100101
  6. PANTOPRAZOLE [Concomitant]
     Indication: GASTROOESOPHAGEAL REFLUX DISEASE
     Dates: start: 20090708
  7. BISOPROLOLE [Concomitant]
     Indication: HYPERTENSION
     Route: 048
     Dates: start: 20100702
  8. ATACAND [Concomitant]
     Indication: HYPERTENSION
     Route: 048
     Dates: start: 20071218
  9. GINGIUM [Concomitant]
     Indication: POOR PERIPHERAL CIRCULATION
     Dates: start: 20080823
  10. METFORMIN HCL [Concomitant]
     Indication: DIABETES MELLITUS
     Route: 048
     Dates: start: 20081001
  11. MIRTAZAPINE [Concomitant]
     Indication: TRIGEMINAL NEURALGIA
     Route: 048
     Dates: start: 20090708
  12. PROPYCIL [Concomitant]
     Indication: HYPERTHYROIDISM
     Dates: start: 20081001, end: 20110830

REACTIONS (1)
  - HAEMOPTYSIS [None]
